FAERS Safety Report 18702219 (Version 1)
Quarter: 2021Q1

REPORT INFORMATION
  Report Type: Spontaneous
  Country: US (occurrence: US)
  Receive Date: 20210105
  Receipt Date: 20210105
  Transmission Date: 20210419
  Serious: Yes (Death)
  Sender: FDA-Public Use
  Company Number: US-BAYER-2020-287218

PATIENT
  Age: 57 Year
  Sex: Female

DRUGS (8)
  1. MIRTAZAPIN [Suspect]
     Active Substance: MIRTAZAPINE
  2. VITAMIN D [VITAMIN D NOS] [Suspect]
     Active Substance: VITAMIN D NOS
  3. MELOXICAM. [Suspect]
     Active Substance: MELOXICAM
  4. BUDESONIDE. [Suspect]
     Active Substance: BUDESONIDE
  5. NAPROXEN SODIUM ({= 220 MG) [Suspect]
     Active Substance: NAPROXEN SODIUM
     Route: 048
  6. HALOPERIDOL. [Suspect]
     Active Substance: HALOPERIDOL
  7. TRAMADOL. [Suspect]
     Active Substance: TRAMADOL
  8. PROPRANOLOL [Suspect]
     Active Substance: PROPRANOLOL HYDROCHLORIDE

REACTIONS (2)
  - Toxicity to various agents [Fatal]
  - Completed suicide [Fatal]
